FAERS Safety Report 9224859 (Version 2)
Quarter: 2013Q2

REPORT INFORMATION
  Report Type: Spontaneous
  Country: US (occurrence: None)
  Receive Date: 20130409
  Receipt Date: 20130506
  Transmission Date: 20140414
  Serious: Yes (Hospitalization, Other)
  Sender: FDA-Public Use
  Company Number: 2013P1004372

PATIENT
  Age: 42 Year
  Sex: Female

DRUGS (2)
  1. INFUMORPH [Suspect]
     Indication: PAIN
     Route: 037
  2. INFUMORPH [Suspect]
     Indication: PAIN IN EXTREMITY
     Route: 037

REACTIONS (5)
  - Device occlusion [None]
  - Pain [None]
  - Infection [None]
  - Drug withdrawal syndrome [None]
  - Purulence [None]
